FAERS Safety Report 13536418 (Version 1)
Quarter: 2017Q2

REPORT INFORMATION
  Report Type: Spontaneous
  Country: US (occurrence: US)
  Receive Date: 20170511
  Receipt Date: 20170511
  Transmission Date: 20170830
  Serious: Yes (Death, Other)
  Sender: FDA-Public Use
  Company Number: US-VIFOR (INTERNATIONAL) INC.-VIT-2017-05071

PATIENT
  Age: 69 Year
  Sex: Male
  Weight: 108.7 kg

DRUGS (3)
  1. MIRCERA [Suspect]
     Active Substance: METHOXY POLYETHYLENE GLYCOL-EPOETIN BETA
     Indication: ANAEMIA
     Route: 040
     Dates: start: 20170428
  2. HEPARIN [Concomitant]
     Active Substance: HEPARIN SODIUM
     Route: 040
  3. HECTOROL [Suspect]
     Active Substance: DOXERCALCIFEROL
     Indication: SECONDARY HYPERTHYROIDISM
     Route: 040
     Dates: start: 20170428, end: 20170428

REACTIONS (5)
  - Dyspnoea [Unknown]
  - Death [Fatal]
  - Unresponsive to stimuli [Unknown]
  - Dysphonia [Unknown]
  - Pallor [Unknown]

NARRATIVE: CASE EVENT DATE: 20170428
